FAERS Safety Report 14598956 (Version 1)
Quarter: 2018Q1

REPORT INFORMATION
  Report Type: Spontaneous
  Country: US (occurrence: US)
  Receive Date: 20180305
  Receipt Date: 20180305
  Transmission Date: 20180509
  Serious: No
  Sender: FDA-Public Use
  Company Number: US-BEH-2018088381

PATIENT
  Sex: Male
  Weight: 93.9 kg

DRUGS (28)
  1. ZEMAIRA [Suspect]
     Active Substance: .ALPHA.1-PROTEINASE INHIBITOR HUMAN
     Indication: ALPHA-1 ANTI-TRYPSIN DEFICIENCY
     Dosage: 60 MG PER KG, QW
     Route: 042
     Dates: start: 20050425
  2. SODIUM CHLORIDE. [Concomitant]
     Active Substance: SODIUM CHLORIDE
  3. OMEPRAZOLE. [Concomitant]
     Active Substance: OMEPRAZOLE
  4. DILTIAZEM. [Concomitant]
     Active Substance: DILTIAZEM
  5. DIPHENHYDRAMINE. [Concomitant]
     Active Substance: DIPHENHYDRAMINE
  6. AZITHROMYCIN ANHYDROUS. [Concomitant]
     Active Substance: AZITHROMYCIN ANHYDROUS
  7. IPRATROPIUM BROMIDE AND ALBUTEROL SULFATE [Concomitant]
     Active Substance: ALBUTEROL SULFATE\IPRATROPIUM BROMIDE
  8. VITAMINS WITH MINERALS [Concomitant]
     Active Substance: MINERALS\VITAMINS
  9. ZEMAIRA [Suspect]
     Active Substance: .ALPHA.1-PROTEINASE INHIBITOR HUMAN
     Dosage: UNK
     Route: 042
  10. PREDNISONE. [Concomitant]
     Active Substance: PREDNISONE
  11. AMOXICILLIN AND CLAVULANATE POTASSIUM [Concomitant]
     Active Substance: AMOXICILLIN\CLAVULANATE POTASSIUM
  12. ALENDRONATE [Concomitant]
     Active Substance: ALENDRONATE SODIUM
  13. OSCAL [Concomitant]
     Active Substance: CALCIUM CARBONATE
  14. ALBUTEROL SULFATE. [Concomitant]
     Active Substance: ALBUTEROL SULFATE
  15. XANAX [Concomitant]
     Active Substance: ALPRAZOLAM
  16. SERTRALINE [Concomitant]
     Active Substance: SERTRALINE HYDROCHLORIDE
  17. SPIRIVA [Concomitant]
     Active Substance: TIOTROPIUM BROMIDE MONOHYDRATE
  18. MIRTAZAPINE. [Concomitant]
     Active Substance: MIRTAZAPINE
  19. EPIPEN [Concomitant]
     Active Substance: EPINEPHRINE
  20. LMX                                /00033401/ [Concomitant]
  21. RISEDRONATE [Concomitant]
     Active Substance: RISEDRONATE SODIUM
  22. SYMBICORT [Concomitant]
     Active Substance: BUDESONIDE\FORMOTEROL FUMARATE DIHYDRATE
  23. OXYGEN. [Concomitant]
     Active Substance: OXYGEN
  24. LEVOFLOXACIN. [Concomitant]
     Active Substance: LEVOFLOXACIN
  25. DYMISTA [Concomitant]
     Active Substance: AZELASTINE HYDROCHLORIDE\FLUTICASONE PROPIONATE
  26. BUSPIRONE [Concomitant]
     Active Substance: BUSPIRONE HYDROCHLORIDE
  27. LIALDA [Concomitant]
     Active Substance: MESALAMINE
  28. ZETIA [Concomitant]
     Active Substance: EZETIMIBE

REACTIONS (1)
  - Chest pain [Unknown]
